FAERS Safety Report 4986828-8 (Version None)
Quarter: 2006Q2

REPORT INFORMATION
  Report Type: 
  Country: None (occurrence: None)
  Receive Date: 20060428
  Receipt Date: 20050519
  Transmission Date: 20061013
  Serious: Yes (Death, Life-Threatening, Hospitalization)
  Sender: FDA-Public Use
  Company Number: NO-MERCK-0505NOR00017

PATIENT
  Age: 65 Year
  Sex: Male

DRUGS (6)
  1. VIOXX [Suspect]
     Indication: OSTEOARTHRITIS
     Route: 048
     Dates: start: 20020104, end: 20030501
  2. VIOXX [Suspect]
     Route: 048
     Dates: start: 20030501, end: 20030101
  3. VIOXX [Suspect]
     Indication: INTERVERTEBRAL DISC PROTRUSION
     Route: 048
     Dates: start: 20020104, end: 20030501
  4. VIOXX [Suspect]
     Route: 048
     Dates: start: 20030501, end: 20030101
  5. LISINOPRIL [Concomitant]
     Indication: HYPERTENSION
     Route: 048
     Dates: start: 19920101, end: 20040204
  6. ESOMEPRAZOLE [Concomitant]
     Indication: GASTROOESOPHAGEAL REFLUX DISEASE
     Route: 048
     Dates: start: 20010129, end: 20040204

REACTIONS (2)
  - CARDIAC TAMPONADE [None]
  - MYOCARDIAL INFARCTION [None]
